FAERS Safety Report 19206015 (Version 1)
Quarter: 2021Q2

REPORT INFORMATION
  Report Type: Spontaneous
  Country: DE (occurrence: DE)
  Receive Date: 20210503
  Receipt Date: 20210503
  Transmission Date: 20210717
  Serious: Yes (Hospitalization)
  Sender: FDA-Public Use
  Company Number: DE-ACCORD-223836

PATIENT
  Age: 5 Year
  Sex: Female
  Weight: 16 kg

DRUGS (1)
  1. LEVETIRACETAM. [Suspect]
     Active Substance: LEVETIRACETAM
     Indication: PARTIAL SEIZURES
     Dosage: DAILY DOSE: 400 MG MILLGRAM(S) EVERY DAYS 2 SEPARATED DOSES
     Route: 048
     Dates: start: 201907, end: 20200508

REACTIONS (4)
  - Partial seizures [Recovered/Resolved]
  - Off label use [Unknown]
  - Drug dose titration not performed [Unknown]
  - Medication error [Unknown]

NARRATIVE: CASE EVENT DATE: 20200508
